FAERS Safety Report 6395070-8 (Version None)
Quarter: 2009Q4

REPORT INFORMATION
  Report Type: 
  Country: None (occurrence: None)
  Receive Date: 20091009
  Receipt Date: 20091003
  Transmission Date: 20100525
  Serious: Yes (Other)
  Sender: FDA-Public Use
  Company Number: US-PFIZER INC-2009257183

PATIENT
  Sex: Female
  Weight: 69.4 kg

DRUGS (2)
  1. DEPO-PROVERA [Suspect]
     Indication: CONTRACEPTION
     Dosage: UNK
     Dates: start: 20090401
  2. PROTONIX [Concomitant]
     Indication: GASTROOESOPHAGEAL REFLUX DISEASE
     Dosage: UNK

REACTIONS (6)
  - ABDOMINAL PAIN [None]
  - AMENORRHOEA [None]
  - MALAISE [None]
  - MUSCLE SPASMS [None]
  - TRISMUS [None]
  - WEIGHT INCREASED [None]
